FAERS Safety Report 9362139 (Version 2)
Quarter: 2013Q3

REPORT INFORMATION
  Report Type: Report from Study
  Country: US (occurrence: US)
  Receive Date: 20130621
  Receipt Date: 20130719
  Transmission Date: 20140515
  Serious: Yes (Hospitalization)
  Sender: FDA-Public Use
  Company Number: US-US-EMD SERONO, INC.-7218781

PATIENT
  Sex: Female
  Weight: 69 kg

DRUGS (1)
  1. REBIF [Suspect]
     Indication: MULTIPLE SCLEROSIS
     Route: 058
     Dates: start: 20130430

REACTIONS (3)
  - Nephrolithiasis [Recovered/Resolved]
  - Kidney enlargement [Recovered/Resolved]
  - Torsion of the urethra [Recovered/Resolved]
